FAERS Safety Report 5400466-4 (Version None)
Quarter: 2007Q3

REPORT INFORMATION
  Report Type: 
  Country: None (occurrence: None)
  Receive Date: 20070730
  Receipt Date: 20070720
  Transmission Date: 20080115
  Serious: Yes (Hospitalization)
  Sender: FDA-Public Use
  Company Number: JP-MERCK-0707USA03984

PATIENT
  Age: 11 Year
  Weight: 49 kg

DRUGS (2)
  1. COZAAR [Suspect]
     Route: 048
  2. COZAAR [Suspect]
     Route: 048
     Dates: start: 20060401

REACTIONS (3)
  - OVERDOSE [None]
  - PNEUMONIA [None]
  - RENAL DISORDER [None]
